FAERS Safety Report 14596771 (Version 2)
Quarter: 2018Q1

REPORT INFORMATION
  Report Type: Spontaneous
  Country: US (occurrence: US)
  Receive Date: 20180304
  Receipt Date: 20180315
  Transmission Date: 20180509
  Serious: Yes (Other)
  Sender: FDA-Public Use
  Company Number: US-JNJFOC-20180226855

PATIENT
  Age: 11 Year
  Sex: Male
  Weight: 37.65 kg

DRUGS (3)
  1. REMICADE [Suspect]
     Active Substance: INFLIXIMAB
     Indication: JUVENILE IDIOPATHIC ARTHRITIS
     Route: 042
     Dates: start: 20180219
  2. SODIUM CHLORIDE. [Concomitant]
     Active Substance: SODIUM CHLORIDE
     Dosage: 1-2 DEGREE
     Route: 042
     Dates: start: 20180219
  3. METHYLPREDNISOLONE. [Concomitant]
     Active Substance: METHYLPREDNISOLONE
     Indication: PREMEDICATION
     Route: 042
     Dates: start: 20180219

REACTIONS (4)
  - Product use in unapproved indication [Unknown]
  - Infusion site extravasation [Unknown]
  - Off label use [Unknown]
  - Chest pain [Unknown]

NARRATIVE: CASE EVENT DATE: 20180219
